FAERS Safety Report 22518422 (Version 1)
Quarter: 2023Q2

REPORT INFORMATION
  Report Type: Report from Study
  Country: IT (occurrence: None)
  Receive Date: 20230605
  Receipt Date: 20230605
  Transmission Date: 20230722
  Serious: Yes (Other)
  Sender: FDA-Public Use
  Company Number: IT-Merck Healthcare KGaA-9406286

PATIENT
  Age: 14 Year
  Sex: Male

DRUGS (4)
  1. SAIZEN [Suspect]
     Active Substance: SOMATROPIN
     Indication: Product used for unknown indication
     Dosage: SAIZEN 12MG (8MG/ML)
     Route: 058
     Dates: start: 20221104
  2. SAIZEN [Suspect]
     Active Substance: SOMATROPIN
     Dosage: SAIZEN 12MG (8MG/ML)
     Route: 058
     Dates: start: 20210517
  3. SAIZEN [Suspect]
     Active Substance: SOMATROPIN
     Dosage: SAIZEN 12MG (8MG/ML)
     Route: 058
     Dates: start: 20211108
  4. SAIZEN [Suspect]
     Active Substance: SOMATROPIN
     Dosage: SAIZEN 12MG (8MG/ML)
     Route: 058
     Dates: start: 20230601

REACTIONS (1)
  - Breast abscess [Unknown]
